FAERS Safety Report 5124334-0 (Version None)
Quarter: 2006Q3

REPORT INFORMATION
  Report Type: 
  Country: None (occurrence: None)
  Receive Date: 20060813
  Receipt Date: 20060127
  Transmission Date: 20061208
  Serious: Yes (Other)
  Sender: FDA-Public Use
  Company Number: 33801

PATIENT
  Age: 86 Year
  Sex: Female

DRUGS (1)
  1. ECONOPRED PLUS [Suspect]
     Indication: PROPHYLAXIS

REACTIONS (1)
  - GLAUCOMA [None]
